FAERS Safety Report 25819977 (Version 3)
Quarter: 2025Q4

REPORT INFORMATION
  Report Type: Spontaneous
  Country: JP (occurrence: JP)
  Receive Date: 20250918
  Receipt Date: 20251020
  Transmission Date: 20260117
  Serious: Yes (Other)
  Sender: AMGEN
  Company Number: JP-KYOWAKIRIN-2025KK017306

PATIENT
  Age: 8 Decade
  Sex: Male

DRUGS (2)
  1. PEGFILGRASTIM [Suspect]
     Active Substance: PEGFILGRASTIM
     Indication: Colony stimulating factor therapy
     Dosage: APPROXIMATELY 40% OF THE DRUG HAD BEEN ADMINISTERED
     Route: 058
     Dates: start: 20250822, end: 20250822
  2. PEGFILGRASTIM [Suspect]
     Active Substance: PEGFILGRASTIM
     Dosage: 3.6 MG, NUMBER OF DOSES ADMINISTERED WAS 10
     Route: 058

REACTIONS (5)
  - Neutropenia [Recovered/Resolved]
  - Myelosuppression [Unknown]
  - Colony stimulating factor therapy [Unknown]
  - Injection site haemorrhage [Recovered/Resolved]
  - Underdose [Unknown]

NARRATIVE: CASE EVENT DATE: 20250822
